FAERS Safety Report 24893197 (Version 1)
Quarter: 2025Q1

REPORT INFORMATION
  Report Type: Spontaneous
  Country: GB (occurrence: GB)
  Receive Date: 20250128
  Receipt Date: 20250128
  Transmission Date: 20250408
  Serious: Yes (Death, Other)
  Sender: ROCHE
  Company Number: None

PATIENT
  Age: 19 Year
  Sex: Male

DRUGS (2)
  1. RITUXIMAB [Suspect]
     Active Substance: RITUXIMAB
     Indication: Neuromyelitis optica spectrum disorder
     Route: 065
     Dates: start: 20161201
  2. IMMUNOGLOBULIN NORMAL [Concomitant]
     Indication: Hypogammaglobulinaemia

REACTIONS (3)
  - Hypogammaglobulinaemia [Unknown]
  - Progressive multifocal leukoencephalopathy [Fatal]
  - Infection [Unknown]
